FAERS Safety Report 4654699-5 (Version None)
Quarter: 2005Q2

REPORT INFORMATION
  Report Type: 
  Country: None (occurrence: None)
  Receive Date: 20050505
  Receipt Date: 20050505
  Transmission Date: 20051028
  Serious: Yes (Other)
  Sender: FDA-Public Use
  Company Number: None

PATIENT
  Age: 88 Year
  Sex: Female
  Weight: 53.0709 kg

DRUGS (3)
  1. PREDNISONE TAB [Suspect]
     Indication: ARTHRITIS
     Dosage: 4 TABS (20 MG) AS ONE DOSE ONCE DAILY
     Dates: start: 20050419, end: 20050421
  2. PLENDIL [Concomitant]
  3. CENTRUM SILVER MULTIVITAMIN [Concomitant]

REACTIONS (3)
  - PHARMACEUTICAL PRODUCT COMPLAINT [None]
  - RASH MACULAR [None]
  - RASH PRURITIC [None]
